FAERS Safety Report 4612256-0 (Version None)
Quarter: 2005Q1

REPORT INFORMATION
  Report Type: 
  Country: None (occurrence: None)
  Receive Date: 20050316
  Receipt Date: 20050228
  Transmission Date: 20050727
  Serious: Yes (Hospitalization)
  Sender: FDA-Public Use
  Company Number: USA050291648

PATIENT
  Age: 12 Year
  Sex: Male

DRUGS (1)
  1. STRATTERA [Suspect]
     Indication: ATTENTION DEFICIT/HYPERACTIVITY DISORDER
     Dosage: 60 MG DAY
     Dates: start: 20041201, end: 20050220

REACTIONS (7)
  - ABASIA [None]
  - CONVERSION DISORDER [None]
  - CRYING [None]
  - DIZZINESS [None]
  - FACIAL PALSY [None]
  - MENTAL STATUS CHANGES [None]
  - MOTOR DYSFUNCTION [None]
